FAERS Safety Report 4983862-9 (Version None)
Quarter: 2006Q2

REPORT INFORMATION
  Report Type: 
  Country: None (occurrence: None)
  Receive Date: 20060426
  Receipt Date: 20041123
  Transmission Date: 20061013
  Serious: Yes (Other)
  Sender: FDA-Public Use
  Company Number: US-MERCK-0411USA03748

PATIENT
  Age: 80 Year
  Sex: Female
  Weight: 86 kg

DRUGS (11)
  1. VIOXX [Suspect]
     Indication: OSTEOARTHRITIS
     Route: 048
     Dates: start: 20010721, end: 20040801
  2. CEPHALEXIN [Concomitant]
     Route: 065
  3. NYSTATIN [Concomitant]
     Route: 048
  4. METOPROLOL [Concomitant]
     Route: 065
  5. ALPRAZOLAM [Concomitant]
     Route: 065
  6. ATACAND [Concomitant]
     Route: 065
  7. DYAZIDE [Concomitant]
     Indication: HYPERTENSION
     Route: 065
  8. KLOR-CON [Concomitant]
     Route: 065
  9. PREDNISONE [Concomitant]
     Route: 065
  10. LEVAQUIN [Concomitant]
     Route: 065
  11. METROGEL [Concomitant]
     Route: 065

REACTIONS (6)
  - CEREBROVASCULAR ACCIDENT [None]
  - FLATULENCE [None]
  - GASTROOESOPHAGEAL REFLUX DISEASE [None]
  - HYPERTENSIVE ENCEPHALOPATHY [None]
  - LACUNAR INFARCTION [None]
  - TRANSIENT ISCHAEMIC ATTACK [None]
